FAERS Safety Report 6594706-6 (Version None)
Quarter: 2010Q1

REPORT INFORMATION
  Report Type: 
  Country: None (occurrence: None)
  Receive Date: 20100222
  Receipt Date: 20100210
  Transmission Date: 20100710
  Serious: Yes (Death, Hospitalization)
  Sender: FDA-Public Use
  Company Number: CA-PFIZER INC-2008156910

PATIENT
  Age: 63 Year
  Sex: Male
  Weight: 82 kg

DRUGS (2)
  1. *ERLOTINIB [Suspect]
     Indication: LUNG NEOPLASM MALIGNANT
     Dosage: 150 MG, 1X/DAY
     Route: 048
     Dates: start: 20080710, end: 20081203
  2. SUNITINIB MALATE [Suspect]
     Indication: LUNG NEOPLASM MALIGNANT
     Dosage: 37.5 MG, 1X/DAY
     Route: 048
     Dates: start: 20080710, end: 20081203

REACTIONS (2)
  - CEREBRAL HAEMORRHAGE [None]
  - DYSPNOEA [None]
